FAERS Safety Report 25954270 (Version 1)
Quarter: 2025Q4

REPORT INFORMATION
  Report Type: Spontaneous
  Country: BD (occurrence: BD)
  Receive Date: 20251023
  Receipt Date: 20251023
  Transmission Date: 20260118
  Serious: Yes (Other)
  Sender: PRINSTON PHARMACEUTICAL
  Company Number: BD-PRINSTON PHARMACEUTICAL INC.-2025PRN00337

PATIENT
  Age: 26 Year
  Sex: Male

DRUGS (5)
  1. TADALAFIL [Suspect]
     Active Substance: TADALAFIL
     Indication: Penis disorder
     Dosage: 2.5 MG, 1X/DAY
  2. TADALAFIL [Suspect]
     Active Substance: TADALAFIL
     Dosage: HALF (1.25 MG)
  3. TADALAFIL [Suspect]
     Active Substance: TADALAFIL
     Dosage: 2.5 MG, 1X/DAY
  4. ESCITALOPRAM [Concomitant]
     Active Substance: ESCITALOPRAM OXALATE
     Dosage: UNK
  5. VITAMINS [Concomitant]
     Active Substance: VITAMINS
     Dosage: UNK

REACTIONS (1)
  - Ejaculation disorder [Recovered/Resolved]
